FAERS Safety Report 4392819-0 (Version None)
Quarter: 2004Q3

REPORT INFORMATION
  Report Type: 
  Country: None (occurrence: None)
  Receive Date: 20040702
  Receipt Date: 20040624
  Transmission Date: 20050211
  Serious: Yes (Hospitalization)
  Sender: FDA-Public Use
  Company Number: 04P-056-0264821-00

PATIENT
  Age: 23 Year
  Sex: Male

DRUGS (1)
  1. VALPROATE SODIUM [Suspect]
     Indication: EPILEPSY
     Dosage: 2000 MG, 1 IN 1 D, PER ORAL
     Route: 048
     Dates: end: 20040411

REACTIONS (4)
  - ABNORMAL BEHAVIOUR [None]
  - ANTICONVULSANT DRUG LEVEL INCREASED [None]
  - BALANCE DISORDER [None]
  - SOMNOLENCE [None]
